FAERS Safety Report 6388198-X (Version None)
Quarter: 2009Q3

REPORT INFORMATION
  Report Type: 
  Country: None (occurrence: None)
  Receive Date: 20090930
  Receipt Date: 20090928
  Transmission Date: 20100115
  Serious: Yes (Death, Life-Threatening)
  Sender: FDA-Public Use
  Company Number: GXKR2009DE10677

PATIENT
  Age: 73 Year
  Sex: Male
  Weight: 75 kg

DRUGS (4)
  1. ASPIRIN [Suspect]
     Indication: CORONARY ARTERY DISEASE
     Dosage: 100 MG, QD, ORAL
     Route: 048
     Dates: start: 20030101
  2. CIPRAMIL/NET/(CITALOPRAM HYDROCHLORIDE) [Concomitant]
  3. LIORESAL ^CIBA-CEIGY^ (BACLOFEN) [Concomitant]
  4. OXCARBAZEPINE [Concomitant]

REACTIONS (5)
  - EPILEPSY [None]
  - HAEMORRHAGIC DIATHESIS [None]
  - TONGUE BITING [None]
  - TONGUE HAEMATOMA [None]
  - UPPER AIRWAY OBSTRUCTION [None]
